FAERS Safety Report 6537757-X (Version None)
Quarter: 2010Q1

REPORT INFORMATION
  Report Type: 
  Country: None (occurrence: None)
  Receive Date: 20100111
  Receipt Date: 20100106
  Transmission Date: 20100710
  Serious: Yes (Hospitalization)
  Sender: FDA-Public Use
  Company Number: 2010SP000981

PATIENT
  Age: 59 Year
  Sex: Male

DRUGS (2)
  1. REBETOL [Suspect]
     Indication: HEPATITIS C
     Dosage: ; PO
     Route: 048
  2. PEG-INTERFERON (PEGINTERFERON ALFA-2B) [Suspect]
     Indication: HEPATITIS C

REACTIONS (3)
  - ANTI-GAD ANTIBODY POSITIVE [None]
  - DIABETIC KETOACIDOSIS [None]
  - TYPE 1 DIABETES MELLITUS [None]
